FAERS Safety Report 11438287 (Version 2)
Quarter: 2015Q3

REPORT INFORMATION
  Report Type: Spontaneous
  Country: US (occurrence: None)
  Receive Date: 20150828
  Receipt Date: 20150914
  Transmission Date: 20151125
  Serious: Yes (Other)
  Sender: FDA-Public Use
  Company Number: ADR-2015-01633

PATIENT
  Age: 52 Year
  Sex: Female

DRUGS (4)
  1. MORPHINE INTRATHECAL [Suspect]
     Active Substance: MORPHINE
     Indication: SPINAL PAIN
     Dosage: UNK
  2. COMPOUNDED BACLOFEN INTRATHECAL 500 MCG/CC [Suspect]
     Active Substance: BACLOFEN
     Indication: SPINAL PAIN
     Dosage: 224.85 MCG/CC
  3. DILAUDID [Suspect]
     Active Substance: HYDROMORPHONE HYDROCHLORIDE
  4. BETADINE [Suspect]
     Active Substance: POVIDONE-IODINE

REACTIONS (5)
  - Sepsis [None]
  - Chronic kidney disease [None]
  - Disease progression [None]
  - Urinary retention [None]
  - Urinary tract infection [None]
